FAERS Safety Report 17811708 (Version 1)
Quarter: 2020Q2

REPORT INFORMATION
  Report Type: Spontaneous
  Country: US (occurrence: US)
  Receive Date: 20200521
  Receipt Date: 20200521
  Transmission Date: 20200714
  Serious: Yes (Other)
  Sender: FDA-Public Use
  Company Number: US-PFIZER INC-2020201240

PATIENT
  Sex: Female

DRUGS (2)
  1. CELONTIN [Suspect]
     Active Substance: METHSUXIMIDE
     Dosage: UNK
  2. CYTOMEL [Suspect]
     Active Substance: LIOTHYRONINE SODIUM
     Dosage: UNK

REACTIONS (1)
  - Autoimmune thyroiditis [Unknown]
